FAERS Safety Report 7940670-4 (Version None)
Quarter: 2011Q4

REPORT INFORMATION
  Report Type: 
  Country: None (occurrence: None)
  Receive Date: 20111114
  Receipt Date: 20110308
  Transmission Date: 20120403
  Serious: Yes (Hospitalization, Other)
  Sender: FDA-Public Use
  Company Number: 2011S1000169

PATIENT

DRUGS (1)
  1. CUBICIN [Suspect]
     Dosage: IV
     Route: 042

REACTIONS (1)
  - EOSINOPHILIC PNEUMONIA [None]
